FAERS Safety Report 5029847-8 (Version None)
Quarter: 2006Q2

REPORT INFORMATION
  Report Type: 
  Country: None (occurrence: None)
  Receive Date: 20060620
  Receipt Date: 20060502
  Transmission Date: 20061013
  Serious: Yes (Hospitalization)
  Sender: FDA-Public Use
  Company Number: ITWYE603305MAY06

PATIENT
  Sex: Male

DRUGS (2)
  1. ENBREL [Suspect]
     Indication: RHEUMATOID ARTHRITIS
     Dosage: 25 MG
     Route: 058
     Dates: start: 20041001, end: 20060401
  2. NIMESULIDE [Concomitant]
     Dosage: 100 MG
     Route: 048

REACTIONS (2)
  - CONFUSIONAL STATE [None]
  - PARTIAL SEIZURES [None]
